FAERS Safety Report 7683107-5 (Version None)
Quarter: 2011Q3

REPORT INFORMATION
  Report Type: 
  Country: None (occurrence: None)
  Receive Date: 20110815
  Receipt Date: 20110804
  Transmission Date: 20111222
  Serious: Yes (Hospitalization)
  Sender: FDA-Public Use
  Company Number: CA-JNJFOC-20110703265

PATIENT
  Sex: Male
  Weight: 86 kg

DRUGS (10)
  1. REMICADE [Suspect]
     Indication: RHEUMATOID ARTHRITIS
     Route: 042
  2. CRESTOR [Concomitant]
     Route: 048
  3. METHOTREXATE [Concomitant]
     Route: 058
  4. OTHER THERAPEUTIC MEDICATION [Concomitant]
     Route: 048
  5. FOLIC ACID [Concomitant]
     Route: 048
  6. METOPROLOL TARTRATE [Concomitant]
     Route: 048
  7. ALENDRONATE SODIUM [Concomitant]
     Route: 048
  8. REMICADE [Suspect]
     Route: 042
     Dates: start: 20010101
  9. PERINDOPRIL ERBUMINE [Concomitant]
     Route: 048
  10. ASPIRIN [Concomitant]
     Route: 048

REACTIONS (1)
  - RHEUMATOID ARTHRITIS [None]
